FAERS Safety Report 7433893-4 (Version None)
Quarter: 2011Q2

REPORT INFORMATION
  Report Type: 
  Country: None (occurrence: None)
  Receive Date: 20110425
  Receipt Date: 20110414
  Transmission Date: 20111010
  Serious: Yes (Hospitalization, Other)
  Sender: FDA-Public Use
  Company Number: DE-ELI_LILLY_AND_COMPANY-DE201104004003

PATIENT
  Age: 75 Year
  Sex: Female

DRUGS (5)
  1. FORTEO [Suspect]
     Indication: OSTEOPOROSIS
     Dosage: UNK, QD
     Route: 058
     Dates: start: 20101020, end: 20110329
  2. DIOVAN [Concomitant]
     Indication: CARDIAC DISORDER
  3. ASPIRIN [Concomitant]
     Indication: CARDIAC DISORDER
  4. CALCIUM [Concomitant]
  5. METOPROLOL SUCCINATE [Concomitant]
     Indication: CARDIAC DISORDER

REACTIONS (1)
  - BREAST CANCER [None]
